FAERS Safety Report 4385317-1 (Version None)
Quarter: 2004Q2

REPORT INFORMATION
  Report Type: 
  Country: None (occurrence: None)
  Receive Date: 20040624
  Receipt Date: 20040624
  Transmission Date: 20050107
  Serious: Yes (Hospitalization)
  Sender: FDA-Public Use
  Company Number: None

PATIENT
  Age: 77 Year
  Sex: Male
  Weight: 77.2 kg

DRUGS (5)
  1. CAMPTOSAR [Suspect]
     Indication: COLON CANCER METASTATIC
     Dosage: 125 MG/M2 IV WEEKLY
     Route: 042
     Dates: start: 20040212, end: 20040422
  2. EXISULIND [Suspect]
     Indication: COLON CANCER METASTATIC
     Dosage: 250MG PO BID
     Route: 048
     Dates: start: 20040212, end: 20040505
  3. MEGACE [Concomitant]
  4. LISINOPRIL [Concomitant]
  5. PROTONIX [Concomitant]

REACTIONS (2)
  - BILE DUCT OBSTRUCTION [None]
  - DISEASE PROGRESSION [None]
